FAERS Safety Report 4837619-X (Version None)
Quarter: 2005Q4

REPORT INFORMATION
  Report Type: 
  Country: None (occurrence: None)
  Receive Date: 20051024
  Receipt Date: 20050802
  Transmission Date: 20060501
  Serious: No
  Sender: FDA-Public Use
  Company Number: 216686

PATIENT
  Age: 38 Year
  Sex: Female
  Weight: 92.1 kg

DRUGS (7)
  1. XOLAIR [Suspect]
     Indication: ASTHMA
     Dosage: 375 MG, Q2W, SUBCUTANEOUS
     Route: 058
     Dates: start: 20050705
  2. ADVAIR DISKUS 100/50 [Concomitant]
  3. SINGULARI (MONTELUKAST SODIUM) [Concomitant]
  4. FLONASE [Concomitant]
  5. CELEXA [Concomitant]
  6. ALBUTEROL (ALBUTEROL, ALBUTEROL SULFATE) [Concomitant]
  7. PROTONIX [Concomitant]

REACTIONS (2)
  - ABDOMINAL PAIN UPPER [None]
  - SOMNOLENCE [None]
